FAERS Safety Report 8054469-4 (Version None)
Quarter: 2012Q1

REPORT INFORMATION
  Report Type: 
  Country: None (occurrence: None)
  Receive Date: 20120118
  Receipt Date: 20120113
  Transmission Date: 20120608
  Serious: Yes (Hospitalization, Other)
  Sender: FDA-Public Use
  Company Number: US-MERCK-1109USA00848

PATIENT
  Age: 79 Year
  Sex: Female

DRUGS (4)
  1. CELEBREX [Concomitant]
     Route: 048
     Dates: start: 19960101
  2. FOSAMAX [Suspect]
     Indication: OSTEOPOROSIS
     Route: 048
     Dates: start: 20000101, end: 20100101
  3. VITAMINS (UNSPECIFIED) [Concomitant]
     Route: 048
  4. ASPIRIN [Concomitant]
     Route: 048

REACTIONS (22)
  - MORTON'S NEUROMA [None]
  - ANGINA PECTORIS [None]
  - TOOTH DISORDER [None]
  - MACULAR DEGENERATION [None]
  - GASTROOESOPHAGEAL REFLUX DISEASE [None]
  - OSTEOARTHRITIS [None]
  - ARTERIOSCLEROSIS CORONARY ARTERY [None]
  - GOUT [None]
  - DYSPNOEA EXERTIONAL [None]
  - HEARING IMPAIRED [None]
  - FALL [None]
  - FACIAL BONES FRACTURE [None]
  - HAEMOGLOBIN DECREASED [None]
  - HYPERTENSION [None]
  - URINARY INCONTINENCE [None]
  - CONFUSIONAL STATE [None]
  - FEMUR FRACTURE [None]
  - CARDIOVASCULAR DISORDER [None]
  - ARTHROPATHY [None]
  - DEPRESSION [None]
  - VISUAL ACUITY REDUCED [None]
  - DRUG HYPERSENSITIVITY [None]
